FAERS Safety Report 9156338 (Version 1)
Quarter: 2013Q1

REPORT INFORMATION
  Report Type: Spontaneous
  Country: US (occurrence: US)
  Receive Date: 20130312
  Receipt Date: 20130312
  Transmission Date: 20140127
  Serious: No
  Sender: FDA-Public Use
  Company Number: US-009507513-1303USA002057

PATIENT
  Sex: Female

DRUGS (1)
  1. DECADRON [Suspect]
     Route: 042

REACTIONS (8)
  - Mood swings [Unknown]
  - Increased appetite [Unknown]
  - Insomnia [Unknown]
  - Depression [Unknown]
  - Impaired healing [Unknown]
  - Fat redistribution [Unknown]
  - Amnesia [Unknown]
  - Cognitive disorder [Unknown]
